FAERS Safety Report 5447462-9 (Version None)
Quarter: 2007Q3

REPORT INFORMATION
  Report Type: 
  Country: None (occurrence: None)
  Receive Date: 20070905
  Receipt Date: 20070905
  Transmission Date: 20080115
  Serious: Yes (Hospitalization)
  Sender: FDA-Public Use
  Company Number: None

PATIENT
  Sex: Female
  Weight: 56.6996 kg

DRUGS (12)
  1. FERRLICIT -IV- [Suspect]
     Indication: ANAEMIA
     Dosage: 125 MG 1 IV DRIP
     Route: 041
     Dates: start: 20060929, end: 20060929
  2. FERRLICIT -IV- [Suspect]
     Indication: CONGENITAL CYSTIC KIDNEY DISEASE
     Dosage: 125 MG 1 IV DRIP
     Route: 041
     Dates: start: 20060929, end: 20060929
  3. IRBESARTAN [Concomitant]
  4. LEVOTHYROXINE SODIUM [Concomitant]
  5. FOLIC ACID [Concomitant]
  6. SERTRALINE [Concomitant]
  7. SIMVASTATIN [Concomitant]
  8. CLONAZEPAM [Concomitant]
  9. FIORICET [Concomitant]
  10. PERCOCET [Concomitant]
  11. ARANESP [Concomitant]
  12. BOTULINUM THERAPY [Concomitant]

REACTIONS (7)
  - ANAPHYLACTOID REACTION [None]
  - BACK PAIN [None]
  - DYSPNOEA [None]
  - INFUSION RELATED REACTION [None]
  - PAIN IN EXTREMITY [None]
  - PRURITUS [None]
  - URTICARIA [None]
